FAERS Safety Report 8505986-1 (Version None)
Quarter: 2012Q3

REPORT INFORMATION
  Report Type: 
  Country: None (occurrence: None)
  Receive Date: 20120712
  Receipt Date: 20120618
  Transmission Date: 20120928
  Serious: Yes (Other)
  Sender: FDA-Public Use
  Company Number: CH-GLAXOSMITHKLINE-B0811180A

PATIENT
  Sex: Female
  Weight: 69 kg

DRUGS (2)
  1. DOXORUBICIN HCL [Suspect]
     Indication: NEOPLASM
     Dosage: 60MGM2 CYCLIC
     Route: 042
     Dates: start: 20110909
  2. PAZOPANIB [Suspect]
     Indication: NEOPLASM
     Dosage: 400MG PER DAY
     Route: 048
     Dates: start: 20110907

REACTIONS (1)
  - CARDIAC DISORDER [None]
